FAERS Safety Report 8896343 (Version 1)
Quarter: 2012Q4

REPORT INFORMATION
  Report Type: Spontaneous
  Country: US (occurrence: None)
  Receive Date: 20121102
  Receipt Date: 20121102
  Transmission Date: 20130627
  Serious: Yes (Hospitalization)
  Sender: FDA-Public Use
  Company Number: USA/USA/12/0026331

PATIENT
  Age: 34 Year
  Sex: Female

DRUGS (3)
  1. ZOLPIDEM [Suspect]
     Indication: DRUG USE FOR UNKNOWN INDICATION
     Dosage: , Once, Unknown
  2. OXYCODONE [Suspect]
     Dosage: , Once , Unknown
  3. LORAZEPAM (LORAZEPAM) [Suspect]
     Dosage: , Once, Unknown

REACTIONS (6)
  - Stress cardiomyopathy [None]
  - Unresponsive to stimuli [None]
  - Overdose [None]
  - Pupillary reflex impaired [None]
  - Heart rate increased [None]
  - Blood pressure increased [None]
